FAERS Safety Report 23453471 (Version 1)
Quarter: 2024Q1

REPORT INFORMATION
  Report Type: Spontaneous
  Country: US (occurrence: US)
  Receive Date: 20240129
  Receipt Date: 20240129
  Transmission Date: 20240409
  Serious: Yes (Other)
  Sender: FDA-Public Use
  Company Number: US-Stemline Therapeutics, Inc.-2023ST004910

PATIENT
  Age: 64 Year
  Sex: Female

DRUGS (2)
  1. ORSERDU [Suspect]
     Active Substance: ELACESTRANT
     Indication: Product used for unknown indication
     Dosage: 345MG, ORALLY ONCE A DAY
     Route: 048
     Dates: start: 20231113
  2. ORSERDU [Suspect]
     Active Substance: ELACESTRANT
     Dosage: 345MG, ORALLY ONCE A DAY
     Route: 048
     Dates: start: 20231113

REACTIONS (9)
  - Weight decreased [Unknown]
  - Product dose omission issue [Unknown]
  - Nausea [Recovering/Resolving]
  - Vomiting [Unknown]
  - Hot flush [Unknown]
  - Fatigue [Unknown]
  - Decreased appetite [Unknown]
  - Memory impairment [Not Recovered/Not Resolved]
  - Anaemia [Not Recovered/Not Resolved]
